FAERS Safety Report 7059607-8 (Version None)
Quarter: 2010Q4

REPORT INFORMATION
  Report Type: 
  Country: None (occurrence: None)
  Receive Date: 20101025
  Receipt Date: 20101011
  Transmission Date: 20110411
  Serious: Yes (Other)
  Sender: FDA-Public Use
  Company Number: DE-CELGENEUS-062-50794-10101473

PATIENT
  Age: 74 Year
  Sex: Male

DRUGS (2)
  1. VIDAZA [Suspect]
     Route: 050
  2. VIDAZA [Suspect]
     Route: 050
     Dates: start: 20070523, end: 20070527

REACTIONS (5)
  - ABDOMINAL PAIN [None]
  - DYSURIA [None]
  - PLEURAL EFFUSION [None]
  - PNEUMONIA [None]
  - URINARY TRACT INFECTION [None]
